FAERS Safety Report 19997521 (Version 1)
Quarter: 2021Q4

REPORT INFORMATION
  Report Type: Spontaneous
  Country: GB (occurrence: GB)
  Receive Date: 20211026
  Receipt Date: 20211026
  Transmission Date: 20220303
  Serious: Yes (Other)
  Sender: FDA-Public Use
  Company Number: None

PATIENT
  Age: 55 Year
  Sex: Male
  Weight: 79 kg

DRUGS (1)
  1. MIRTAZAPINE [Suspect]
     Active Substance: MIRTAZAPINE
     Indication: Depression
     Dosage: 15MG (COULD NOT TOLERATE)  - 4.5MG (CANNOT GO LOWER WITHOUT THE MOST DEBILITATING SYMPTOMS)
     Route: 048
     Dates: start: 20190401

REACTIONS (6)
  - Tinnitus [Recovering/Resolving]
  - Intentional self-injury [Recovering/Resolving]
  - Suicidal ideation [Recovering/Resolving]
  - Influenza [Recovering/Resolving]
  - Paraesthesia [Recovering/Resolving]
  - Anxiety [Recovering/Resolving]
